FAERS Safety Report 14079350 (Version 1)
Quarter: 2017Q4

REPORT INFORMATION
  Report Type: Report from Study
  Country: US (occurrence: US)
  Receive Date: 20171012
  Receipt Date: 20171012
  Transmission Date: 20180321
  Serious: Yes (Other)
  Sender: FDA-Public Use
  Company Number: US-B.I. PHARMACEUTICALS,INC./RIDGEFIELD-2017-BI-054955

PATIENT

DRUGS (3)
  1. HEPARIN [Concomitant]
     Active Substance: HEPARIN SODIUM
     Indication: PRODUCT USED FOR UNKNOWN INDICATION
     Dosage: TYPICALLY ABOUT 12 H POST-OPERATIVE
     Route: 065
  2. ASPIRIN. [Concomitant]
     Active Substance: ASPIRIN
     Indication: PRODUCT USED FOR UNKNOWN INDICATION
     Dosage: TYPICALLY, 48 H POST-OPERATIVE IN THE SETTING OF GOOD SURGICAL HEMOSTASIS
     Route: 065
  3. PERSANTIN [Suspect]
     Active Substance: DIPYRIDAMOLE
     Indication: PRODUCT USED FOR UNKNOWN INDICATION
     Dosage: TYPICALLY, 48 H POST-OPERATIVE IN THE SETTING OF GOOD SURGICAL HEMOSTASIS
     Route: 065

REACTIONS (1)
  - Haemorrhagic transformation stroke [Recovered/Resolved]
